FAERS Safety Report 19180762 (Version 2)
Quarter: 2021Q2

REPORT INFORMATION
  Report Type: Spontaneous
  Country: US (occurrence: US)
  Receive Date: 20210426
  Receipt Date: 20210607
  Transmission Date: 20210717
  Serious: No
  Sender: FDA-Public Use
  Company Number: US-TEVA-2021-US-1903421

PATIENT
  Age: 58 Year

DRUGS (1)
  1. ALBUTEROL SULFATE HFA [Suspect]
     Active Substance: ALBUTEROL SULFATE
     Indication: ASTHMA
     Dosage: INHALATION ? AEROSOL
     Route: 055

REACTIONS (3)
  - Drug ineffective [Unknown]
  - Adverse event [Unknown]
  - Device delivery system issue [Unknown]
